FAERS Safety Report 5756612-6 (Version None)
Quarter: 2008Q2

REPORT INFORMATION
  Report Type: 
  Country: None (occurrence: None)
  Receive Date: 20080603
  Receipt Date: 20080530
  Transmission Date: 20081010
  Serious: Yes (Hospitalization)
  Sender: FDA-Public Use
  Company Number: CH-BRISTOL-MYERS SQUIBB COMPANY-14211171

PATIENT
  Age: 62 Year
  Sex: Male

DRUGS (4)
  1. TRITTICO [Suspect]
     Indication: DEPRESSION
     Dosage: 1 DOSAGE FORM= 100 MILLIGRAM TABLETS
     Route: 048
     Dates: start: 20080222, end: 20080311
  2. EFFEXOR [Suspect]
     Indication: DEPRESSION
     Dosage: 1 DOSAGE FORM= 75 MILLIGRAM TABLETS. DOSE REDUCED TO 37.5 MG/DAY FROM 17-MAR-08.
     Route: 048
     Dates: start: 20080222
  3. NEBILET [Suspect]
     Indication: ESSENTIAL HYPERTENSION
     Dosage: 1 DOSAGE FORM= 2500 MILLIGRAM TABLET.
     Route: 048
     Dates: start: 20070406
  4. SORTIS [Concomitant]
     Indication: GALLBLADDER CHOLESTEROLOSIS
     Dates: start: 20060305

REACTIONS (3)
  - DRUG WITHDRAWAL SYNDROME [None]
  - SYNCOPE [None]
  - TREMOR [None]
